FAERS Safety Report 18032831 (Version 1)
Quarter: 2020Q3

REPORT INFORMATION
  Report Type: Spontaneous
  Country: US (occurrence: US)
  Receive Date: 20200716
  Receipt Date: 20200716
  Transmission Date: 20201103
  Serious: Yes (Other)
  Sender: FDA-Public Use
  Company Number: US-BIO PRODUCTS LABORATORY LTD-2087422

PATIENT

DRUGS (1)
  1. COAGADEX [Suspect]
     Active Substance: COAGULATION FACTOR X HUMAN
     Indication: FACTOR X DEFICIENCY
     Route: 042

REACTIONS (4)
  - Bacteraemia [Unknown]
  - Sepsis [Unknown]
  - Intentional overdose [Recovered/Resolved]
  - Jugular vein thrombosis [Unknown]
